FAERS Safety Report 19308531 (Version 1)
Quarter: 2021Q2

REPORT INFORMATION
  Report Type: Report from Study
  Country: RU (occurrence: RU)
  Receive Date: 20210525
  Receipt Date: 20210525
  Transmission Date: 20210717
  Serious: Yes (Hospitalization)
  Sender: FDA-Public Use
  Company Number: NVSC2021RU112873

PATIENT
  Age: 79 Year
  Sex: Female
  Weight: 66 kg

DRUGS (5)
  1. AMOXI?CLAVULANICO [Concomitant]
     Active Substance: AMOXICILLIN\CLAVULANIC ACID
     Indication: ERYSIPELAS
     Dosage: UNK
     Route: 065
     Dates: start: 20200908, end: 20200918
  2. LEKOVIT CA [Concomitant]
     Active Substance: CALCIUM CARBONATE\CHOLECALCIFEROL
     Indication: HYPOCALCAEMIA
     Dosage: UNK
     Route: 065
     Dates: start: 20200116
  3. CAPMATINIB [Suspect]
     Active Substance: CAPMATINIB
     Indication: NON-SMALL CELL LUNG CANCER
     Dosage: 800 MG, BID
     Route: 048
     Dates: start: 20190923, end: 20210203
  4. KETOPROFEN. [Concomitant]
     Active Substance: KETOPROFEN
     Indication: BACK PAIN
     Dosage: UNK
     Route: 065
     Dates: start: 20200608
  5. ESSENTIALE [Concomitant]
     Indication: TRANSAMINASES INCREASED
     Dosage: UNK
     Route: 065
     Dates: start: 20191108

REACTIONS (1)
  - Adenocarcinoma gastric [Recovered/Resolved]

NARRATIVE: CASE EVENT DATE: 20210306
